FAERS Safety Report 7381554-2 (Version None)
Quarter: 2011Q1

REPORT INFORMATION
  Report Type: 
  Country: None (occurrence: None)
  Receive Date: 20110329
  Receipt Date: 20110317
  Transmission Date: 20110831
  Serious: Yes (Other)
  Sender: FDA-Public Use
  Company Number: JP-JNJFOC-20110206799

PATIENT
  Sex: Female
  Weight: 53 kg

DRUGS (9)
  1. MORPHINE HYDROCHLORIDE [Suspect]
     Indication: PAIN
     Dosage: AT A TIME
     Route: 065
  2. ZOLOFT [Concomitant]
     Route: 048
  3. SEROQUEL [Concomitant]
     Route: 048
  4. LYRICA [Concomitant]
     Route: 048
  5. DUROTEP MT [Suspect]
     Indication: PAIN
     Route: 062
  6. MORPHINE HYDROCHLORIDE [Suspect]
     Route: 065
  7. PREGABALIN [Concomitant]
     Route: 048
  8. ANTIDEPRESSANT [Concomitant]
     Route: 065
  9. ANXIOLYTIC [Concomitant]
     Route: 065

REACTIONS (1)
  - DRUG ABUSE [None]
